FAERS Safety Report 6441977-2 (Version None)
Quarter: 2009Q4

REPORT INFORMATION
  Report Type: 
  Country: None (occurrence: None)
  Receive Date: 20091116
  Receipt Date: 20091112
  Transmission Date: 20100525
  Serious: Yes (Hospitalization, Other)
  Sender: FDA-Public Use
  Company Number: JP-PFIZER INC-2009265340

PATIENT
  Age: 2 Year
  Sex: Male
  Weight: 12.7 kg

DRUGS (3)
  1. SOLU-MEDROL [Suspect]
     Dosage: 30 MG/KG, UNK
     Route: 042
  2. IMMUNOGLOBULIN G HUMAN [Concomitant]
  3. ACETYLSALICYLIC ACID [Concomitant]

REACTIONS (4)
  - CORONARY ARTERY ANEURYSM [None]
  - INFECTION [None]
  - KAWASAKI'S DISEASE [None]
  - NEUTROPHIL COUNT DECREASED [None]
